FAERS Safety Report 23278300 (Version 1)
Quarter: 2023Q4

REPORT INFORMATION
  Report Type: Spontaneous
  Country: US (occurrence: US)
  Receive Date: 20231208
  Receipt Date: 20231208
  Transmission Date: 20240110
  Serious: Yes (Other)
  Sender: FDA-Public Use
  Company Number: US-ENDO-CASE-0049101

PATIENT
  Sex: Female

DRUGS (4)
  1. PERCOCET [Suspect]
     Active Substance: ACETAMINOPHEN\OXYCODONE HYDROCHLORIDE
  2. DARVON [Suspect]
     Active Substance: PROPOXYPHENE HYDROCHLORIDE
  3. TRAMADOL [Suspect]
     Active Substance: TRAMADOL\TRAMADOL HYDROCHLORIDE
  4. OXYCODONE [Suspect]
     Active Substance: OXYCODONE

REACTIONS (3)
  - Dependence [Unknown]
  - Depression [Unknown]
  - Anxiety [Unknown]
